FAERS Safety Report 7871943 (Version 3)
Quarter: 2012Q4

REPORT INFORMATION
  Report Type: 
  Country: AU (occurrence: AU)
  Receive Date: 20110325
  Receipt Date: 20121022
  Transmission Date: 20130627
  Serious: Yes (Death)
  Sender: FDA-Public Use
  Company Number: AU-PFIZER INC-2011064139

PATIENT
  Age: 60 Year
  Sex: Female
  Weight: 64.8 kg

DRUGS (4)
  1. SILDENAFIL CITRATE [Suspect]
     Indication: PULMONARY HYPERTENSION
     Dosage: 40 mg, 3x/day
     Route: 048
     Dates: start: 20091221, end: 20110310
  2. TRACLEER [Suspect]
     Indication: PULMONARY ARTERIAL HYPERTENSION
     Dosage: 125 mg, 2x/day
     Route: 048
     Dates: start: 20091221, end: 20110310
  3. VENTAVIS [Suspect]
     Indication: PULMONARY ARTERIAL HYPERTENSION
     Dosage: 5 mg, 6-9 times/day
     Route: 055
     Dates: start: 20100202, end: 20110310
  4. FLUOXETINE [Concomitant]
     Indication: DEPRESSION
     Dosage: 20 mg, 1x/day, mane
     Route: 048
     Dates: start: 20101028

REACTIONS (1)
  - Pulmonary hypertension [Fatal]
